FAERS Safety Report 5673177-8 (Version None)
Quarter: 2008Q1

REPORT INFORMATION
  Report Type: 
  Country: None (occurrence: None)
  Receive Date: 20080319
  Receipt Date: 20080312
  Transmission Date: 20080703
  Serious: Yes (Other)
  Sender: FDA-Public Use
  Company Number: US-JNJFOC-20080303154

PATIENT
  Age: 34 Year
  Sex: Female
  Weight: 65.77 kg

DRUGS (1)
  1. TYLENOL SINUS CONGESTION + PAIN SEVERE COOL BURST [Suspect]
     Indication: NASOPHARYNGITIS
     Route: 048

REACTIONS (2)
  - ASTHMA [None]
  - BURNING SENSATION [None]
